FAERS Safety Report 13228105 (Version 1)
Quarter: 2017Q1

REPORT INFORMATION
  Report Type: Spontaneous
  Country: US (occurrence: US)
  Receive Date: 20170213
  Receipt Date: 20170213
  Transmission Date: 20170428
  Serious: No
  Sender: FDA-Public Use
  Company Number: US-CIPLA LTD.-2016US07066

PATIENT

DRUGS (14)
  1. CYCLOBENZAPRINE HYDROCHLORIDE. [Concomitant]
     Active Substance: CYCLOBENZAPRINE HYDROCHLORIDE
     Indication: MUSCLE SPASMS
     Dosage: 10 MG, QID
     Route: 065
  2. CHILDREN^S CHEWABLES [Concomitant]
     Dosage: 2 CHEWABLES
     Route: 048
  3. CELEBREX [Concomitant]
     Active Substance: CELECOXIB
     Indication: ARTHRITIS
     Dosage: 200 MG, QD
     Route: 048
  4. GABAPENTIN. [Suspect]
     Active Substance: GABAPENTIN
     Indication: INTERVERTEBRAL DISC PROTRUSION
     Dosage: 300 MG, 3 IN THE MORNING AND 2 AT BEDTIME.
     Route: 065
     Dates: start: 20160130, end: 20160203
  5. GABAPENTIN. [Suspect]
     Active Substance: GABAPENTIN
     Indication: SCIATIC NERVE INJURY
  6. METFORMIN [Concomitant]
     Active Substance: METFORMIN HYDROCHLORIDE
     Indication: DIABETES MELLITUS
     Dosage: 1000 MG, QD, WITH EVENING MEAL
     Route: 048
  7. OMEPRAZOLE. [Concomitant]
     Active Substance: OMEPRAZOLE
     Indication: GASTROOESOPHAGEAL REFLUX DISEASE
     Dosage: 20 MG, BID
     Route: 048
  8. VITAMIN D3 [Concomitant]
     Active Substance: CHOLECALCIFEROL
     Dosage: 5000 IU, QD
     Route: 065
  9. LOSARTAN POTASSIUM. [Concomitant]
     Active Substance: LOSARTAN POTASSIUM
     Indication: HYPERTENSION
     Dosage: 100 MG, QD
     Route: 065
  10. BUPRENORPHINE HYDROCHLORIDE. [Concomitant]
     Active Substance: BUPRENORPHINE HYDROCHLORIDE
     Indication: NEURALGIA
     Dosage: 2 MG, QID
     Route: 048
  11. METOPROLOL TARTARATE [Concomitant]
     Active Substance: METOPROLOL TARTRATE
     Indication: HYPERTENSION
     Dosage: 25 MG, BID
     Route: 048
  12. FIBER POWDER [Concomitant]
     Indication: CONSTIPATION
     Dosage: UNK
     Route: 048
  13. BUPRENORPHINE HYDROCHLORIDE. [Concomitant]
     Active Substance: BUPRENORPHINE HYDROCHLORIDE
     Indication: DRUG DEPENDENCE
  14. VIACTIVE CALCIUM PLUS D CHEWABLE [Concomitant]
     Dosage: 2 CHEWABLES
     Route: 048

REACTIONS (13)
  - Tremor [Unknown]
  - Feeling abnormal [Recovered/Resolved]
  - Dark circles under eyes [Recovering/Resolving]
  - Balance disorder [Not Recovered/Not Resolved]
  - Fatigue [Unknown]
  - Eye swelling [Recovered/Resolved]
  - Confusional state [Recovered/Resolved]
  - Memory impairment [Recovered/Resolved]
  - Cold sweat [Unknown]
  - Hypotension [Recovered/Resolved]
  - Lacrimation increased [Recovered/Resolved]
  - Agitation [Unknown]
  - Swelling face [Recovered/Resolved]

NARRATIVE: CASE EVENT DATE: 201601
